FAERS Safety Report 9783517 (Version 1)
Quarter: 2013Q4

REPORT INFORMATION
  Report Type: Spontaneous
  Country: US (occurrence: US)
  Receive Date: 20131226
  Receipt Date: 20131226
  Transmission Date: 20140711
  Serious: Yes (Hospitalization)
  Sender: FDA-Public Use
  Company Number: US-JNJFOC-20131213035

PATIENT
  Age: 26 Year
  Sex: Female

DRUGS (5)
  1. INVEGA SUSTENNA [Suspect]
     Indication: SCHIZOPHRENIA
     Route: 030
     Dates: start: 20131201, end: 20131201
  2. INVEGA SUSTENNA [Suspect]
     Indication: SCHIZOPHRENIA
     Route: 030
     Dates: start: 20131127, end: 20131127
  3. ZYPREXA [Concomitant]
     Route: 065
  4. DEPAKOTE [Concomitant]
     Route: 065
  5. COGENTIN [Concomitant]
     Route: 065

REACTIONS (1)
  - Psychotic disorder [Not Recovered/Not Resolved]
